FAERS Safety Report 7438168-5 (Version None)
Quarter: 2011Q2

REPORT INFORMATION
  Report Type: 
  Country: None (occurrence: None)
  Receive Date: 20110421
  Receipt Date: 20110421
  Transmission Date: 20111010
  Serious: No
  Sender: FDA-Public Use
  Company Number: None

PATIENT
  Sex: Female
  Weight: 71.2147 kg

DRUGS (2)
  1. CLONAZEPAM [Suspect]
     Indication: MUSCLE SPASTICITY
     Dosage: 2MG 4 TIMES A DAY BY MOUTH
     Route: 048
     Dates: start: 20110107, end: 20110408
  2. CLONAZEPAM [Suspect]
     Indication: SPINAL CORD INJURY CERVICAL
     Dosage: 2MG 4 TIMES A DAY BY MOUTH
     Route: 048
     Dates: start: 20110107, end: 20110408

REACTIONS (2)
  - PRODUCT SUBSTITUTION ISSUE [None]
  - DRUG EFFECT DECREASED [None]
